FAERS Safety Report 14544250 (Version 1)
Quarter: 2018Q1

REPORT INFORMATION
  Report Type: Spontaneous
  Country: US (occurrence: US)
  Receive Date: 20180215
  Receipt Date: 20180215
  Transmission Date: 20180509
  Serious: No
  Sender: FDA-Public Use
  Company Number: None

PATIENT
  Age: 76 Year
  Sex: Male

DRUGS (1)
  1. LATANAPROST [Suspect]
     Active Substance: LATANOPROST
     Dosage: DATES OF USE - APPROX 20 YEARS?DOSE - 1 DROP IN BOTH EYES?
     Route: 047

REACTIONS (1)
  - Drug ineffective [None]

NARRATIVE: CASE EVENT DATE: 20180212
